FAERS Safety Report 8343910 (Version 5)
Quarter: 2013Q1

REPORT INFORMATION
  Report Type: Spontaneous
  Country: US (occurrence: US)
  Receive Date: 20120119
  Receipt Date: 20130225
  Transmission Date: 20140127
  Serious: Yes (Hospitalization)
  Sender: FDA-Public Use
  Company Number: US-BAYER-2012-004124

PATIENT
  Age: 27 Year
  Sex: Female
  Weight: 99.77 kg

DRUGS (4)
  1. GIANVI [Suspect]
     Indication: CONTRACEPTION
     Dosage: UNK
     Route: 048
     Dates: start: 201012, end: 201106
  2. YAZ [Suspect]
     Indication: CONTRACEPTION
  3. DROSPIRENONE W/ETHINYLESTRADIOL [Concomitant]
     Dosage: 3 MG, UNK
     Dates: start: 20110613, end: 20110704
  4. METRONIDAZOLE [Concomitant]
     Dosage: 500 MG, UNK

REACTIONS (3)
  - Pulmonary embolism [Recovered/Resolved]
  - Chest pain [Recovered/Resolved]
  - Dyspnoea [Recovered/Resolved]
